FAERS Safety Report 21455587 (Version 2)
Quarter: 2023Q1

REPORT INFORMATION
  Report Type: Other
  Country: US (occurrence: None)
  Receive Date: 20221014
  Receipt Date: 20230220
  Transmission Date: 20230417
  Serious: Yes (Hospitalization, Other)
  Sender: FDA-Public Use
  Company Number: US-ROCHE-3120289

PATIENT
  Sex: Male
  Weight: 96.248 kg

DRUGS (15)
  1. XELODA [Suspect]
     Active Substance: CAPECITABINE
     Indication: Colorectal cancer metastatic
     Dosage: TAKE 4 TABLET(S) BY MOUTH IN THE MORNING , TAKE 3 TABLET(S) BY MOUTH IN THE EVENING 2 WEEK(S) ON, 1
     Route: 048
  2. XELODA [Suspect]
     Active Substance: CAPECITABINE
     Indication: Colon cancer
     Route: 048
  3. XELODA [Suspect]
     Active Substance: CAPECITABINE
     Indication: Colon cancer
  4. AVASTIN [Suspect]
     Active Substance: BEVACIZUMAB
     Indication: Product used for unknown indication
     Route: 065
  5. JARDIANCE [Concomitant]
     Active Substance: EMPAGLIFLOZIN
     Indication: Type 2 diabetes mellitus
     Route: 048
     Dates: start: 202301
  6. SERTRALINE [Concomitant]
     Active Substance: SERTRALINE HYDROCHLORIDE
     Route: 048
  7. BISOPROLOL FUMARATE [Concomitant]
     Active Substance: BISOPROLOL FUMARATE
     Indication: Blood pressure measurement
     Dosage: TAKES AT NIGHT
     Route: 048
  8. GABAPENTIN [Concomitant]
     Active Substance: GABAPENTIN
     Dosage: TAKES 2 CAPSULES PER DAY
     Route: 048
  9. ALPRAZOLAM [Concomitant]
     Active Substance: ALPRAZOLAM
     Indication: Panic attack
     Dosage: TAKES AS NEEDED UP TO THREE TIMES PER DAY
     Route: 048
  10. GLIMEPIRIDE [Concomitant]
     Active Substance: GLIMEPIRIDE
     Indication: Diabetes mellitus
     Route: 048
  11. TERAZOZIN [Concomitant]
     Dosage: TAKES AT NIGHT
     Route: 048
     Dates: start: 2022
  12. TERAZOZIN [Concomitant]
     Dosage: TAKES AT NIGHT
     Route: 048
  13. TEMAZEPAM [Concomitant]
     Active Substance: TEMAZEPAM
     Dosage: TAKES 1-2 AT NIGHT AS NEEDED
     Route: 048
     Dates: start: 2023
  14. TYLENOL [Concomitant]
     Active Substance: ACETAMINOPHEN
     Indication: Headache
     Route: 048
     Dates: start: 2022
  15. ACETAMINOPHEN\HYDROCODONE [Concomitant]
     Active Substance: ACETAMINOPHEN\HYDROCODONE
     Indication: Headache
     Dosage: 10MG/350MG; TAKES AS NEEDED
     Route: 048
     Dates: start: 202004

REACTIONS (22)
  - Fall [Unknown]
  - Bedridden [Unknown]
  - Amnesia [Unknown]
  - Back injury [Unknown]
  - Upper limb fracture [Recovering/Resolving]
  - Lower limb fracture [Recovering/Resolving]
  - Rib fracture [Unknown]
  - Spinal fracture [Unknown]
  - Diarrhoea [Recovered/Resolved]
  - Alopecia [Not Recovered/Not Resolved]
  - Visual impairment [Not Recovered/Not Resolved]
  - Blood cholesterol [Not Recovered/Not Resolved]
  - Dyspnoea [Not Recovered/Not Resolved]
  - Headache [Not Recovered/Not Resolved]
  - Insomnia [Not Recovered/Not Resolved]
  - Eye pruritus [Not Recovered/Not Resolved]
  - Panic attack [Not Recovered/Not Resolved]
  - Prostatic disorder [Not Recovered/Not Resolved]
  - Depression [Not Recovered/Not Resolved]
  - Spinal compression fracture [Unknown]
  - Chest discomfort [Unknown]
  - Hypoaesthesia [Unknown]

NARRATIVE: CASE EVENT DATE: 20220101
